FAERS Safety Report 5891070-2 (Version None)
Quarter: 2008Q3

REPORT INFORMATION
  Report Type: 
  Country: None (occurrence: None)
  Receive Date: 20080916
  Receipt Date: 20080916
  Transmission Date: 20090109
  Serious: Yes (Other)
  Sender: FDA-Public Use
  Company Number: None

PATIENT
  Sex: Male
  Weight: 42.6381 kg

DRUGS (2)
  1. FOCALIN IR [Suspect]
     Indication: ATTENTION DEFICIT/HYPERACTIVITY DISORDER
     Dosage: 5MG BID ORAL
     Route: 048
     Dates: start: 20050101
  2. FOCALIN XR [Suspect]
     Dosage: 10MG QAM ORAL
     Route: 048
     Dates: start: 20060101

REACTIONS (4)
  - CONDITION AGGRAVATED [None]
  - IRRITABILITY [None]
  - PSYCHOMOTOR HYPERACTIVITY [None]
  - TRICHOTILLOMANIA [None]
